FAERS Safety Report 9521141 (Version 1)
Quarter: 2013Q1

REPORT INFORMATION
  Report Type: Spontaneous
  Country: US (occurrence: None)
  Receive Date: 20130305
  Receipt Date: 20130305
  Transmission Date: 20140127
  Serious: Yes (Other)
  Sender: FDA-Public Use
  Company Number: 163-21880-12073055

PATIENT
  Age: 68 Year
  Sex: Female
  Weight: 91.17 kg

DRUGS (9)
  1. REVLIMID (LENALIDOMIDE) (CAPSULES) [Suspect]
     Indication: PLASMA CELL MYELOMA
     Route: 048
     Dates: start: 20080912
  2. CARDIZEM (DILTIAZEM HYDROCHLORIDE) (UNKNOWN) [Concomitant]
  3. COUMADIN (WARFARIN SODIUM) (UNKNOWN) [Concomitant]
  4. GLUCOTROL (GLIPIZIDE) (UNKNOWN) [Concomitant]
  5. MULTIVITAMINS (MULTIMVITAMINS) (UNIKNOWN) [Concomitant]
  6. SENOKOT (SENNA FRUIT) (UNKNOWN) [Concomitant]
  7. VALIUM (DIAZEPAM) (UNKNOWN) [Concomitant]
  8. ZETIA (EZETIMIBE) (UNKNOWN) [Concomitant]
  9. ZOCOR (UNKNOWN) [Concomitant]

REACTIONS (3)
  - White blood cell count decreased [None]
  - Vomiting [None]
  - Diarrhoea [None]
